FAERS Safety Report 4414096-4 (Version None)
Quarter: 2004Q3

REPORT INFORMATION
  Report Type: 
  Country: None (occurrence: None)
  Receive Date: 20040728
  Receipt Date: 20040723
  Transmission Date: 20050211
  Serious: Yes (Hospitalization)
  Sender: FDA-Public Use
  Company Number: 2004-BP-01775NB(I)

PATIENT
  Age: 29 Year
  Sex: Female

DRUGS (2)
  1. MICARDIS [Suspect]
     Indication: HYPERTENSION
     Dosage: 20 MG, PO
     Route: 048
     Dates: start: 20040130, end: 20040203
  2. NORVASC [Concomitant]

REACTIONS (5)
  - BLOOD LACTATE DEHYDROGENASE INCREASED [None]
  - DIALYSIS [None]
  - ERYTHROPENIA [None]
  - PURPURA [None]
  - THROMBOCYTOPENIA [None]
